FAERS Safety Report 5257753-2 (Version None)
Quarter: 2007Q1

REPORT INFORMATION
  Report Type: 
  Country: None (occurrence: None)
  Receive Date: 20070302
  Receipt Date: 20070216
  Transmission Date: 20070707
  Serious: Yes (Other)
  Sender: FDA-Public Use
  Company Number: ST-2007-009539

PATIENT
  Age: 77 Year
  Sex: Female

DRUGS (3)
  1. OLMETEC [Suspect]
     Indication: HYPERTENSION
     Dates: start: 20040701, end: 20070105
  2. LIVARO [Suspect]
     Indication: HYPERLIPIDAEMIA
     Dates: start: 20050501, end: 20070105
  3. ASPIRIN [Suspect]
     Dates: start: 20040701, end: 20070105

REACTIONS (1)
  - PEMPHIGUS [None]
